FAERS Safety Report 4820341-3 (Version None)
Quarter: 2005Q4

REPORT INFORMATION
  Report Type: 
  Country: None (occurrence: None)
  Receive Date: 20051104
  Receipt Date: 20051028
  Transmission Date: 20060501
  Serious: Yes (Other)
  Sender: FDA-Public Use
  Company Number: US-AVENTIS-200518752US

PATIENT
  Age: 7 Year
  Sex: Male

DRUGS (2)
  1. LANTUS [Suspect]
     Indication: DIABETES MELLITUS INSULIN-DEPENDENT
     Dosage: DOSE UNIT: UNITS
     Route: 058
     Dates: start: 20050101
  2. NOVOLOG [Concomitant]
     Dosage: DOSE: NOT PROVIDED

REACTIONS (3)
  - ERYTHEMA MULTIFORME [None]
  - RASH GENERALISED [None]
  - URTICARIA [None]
